FAERS Safety Report 21344636 (Version 1)
Quarter: 2022Q3

REPORT INFORMATION
  Report Type: Spontaneous
  Country: DE (occurrence: DE)
  Receive Date: 20220916
  Receipt Date: 20220916
  Transmission Date: 20221027
  Serious: Yes (Hospitalization, Other)
  Sender: FDA-Public Use
  Company Number: None

PATIENT
  Age: 54 Year
  Sex: Female
  Weight: 71 kg

DRUGS (1)
  1. DUPILUMAB [Suspect]
     Active Substance: DUPILUMAB
     Indication: Eosinophilic bronchitis
     Dosage: UNK
     Route: 058
     Dates: start: 20220714

REACTIONS (3)
  - Erythema multiforme [Recovered/Resolved]
  - Eczema [Recovered/Resolved]
  - Muscle discomfort [Unknown]

NARRATIVE: CASE EVENT DATE: 20220717
